FAERS Safety Report 9677330 (Version 6)
Quarter: 2014Q2

REPORT INFORMATION
  Report Type: Spontaneous
  Country: US (occurrence: US)
  Receive Date: 20131108
  Receipt Date: 20140415
  Transmission Date: 20141212
  Serious: Yes (Other)
  Sender: FDA-Public Use
  Company Number: US-PFIZER INC-2013315463

PATIENT
  Age: 47 Year
  Sex: Female
  Weight: 67.6 kg

DRUGS (5)
  1. SUTENT [Suspect]
     Indication: GASTROINTESTINAL STROMAL TUMOUR
     Dosage: 50 MG, CYCLIC (50 MG DAILY, 28 DAYS ON, 14 DAYS OFF)
  2. SUTENT [Suspect]
     Dosage: 37.5 MG, UNK
     Dates: end: 20140209
  3. SUTENT [Suspect]
     Dosage: 25 MG, CYCLIC, 28 DAYS ON AND 14 DAYS OFF
     Dates: start: 20140317
  4. COMPAZINE [Concomitant]
     Dosage: AS NEEDED (PRN)
  5. LISINOPRIL W/HYDROCHLOROTHIAZIDE [Concomitant]
     Dosage: UNK

REACTIONS (14)
  - Hypertension [Recovering/Resolving]
  - Anorectal discomfort [Recovered/Resolved]
  - Dysgeusia [Recovered/Resolved]
  - Neuropathy peripheral [Unknown]
  - Alopecia [Unknown]
  - Nausea [Unknown]
  - Dysphagia [Unknown]
  - Diarrhoea [Recovering/Resolving]
  - Fatigue [Recovering/Resolving]
  - Dehydration [Unknown]
  - Excoriation [Recovered/Resolved]
  - Weight decreased [Recovered/Resolved]
  - Decreased appetite [Unknown]
  - Weight fluctuation [Unknown]
